FAERS Safety Report 23423462 (Version 1)
Quarter: 2024Q1

REPORT INFORMATION
  Report Type: Spontaneous
  Country: GB (occurrence: GB)
  Receive Date: 20240119
  Receipt Date: 20240119
  Transmission Date: 20240410
  Serious: Yes (Other)
  Sender: FDA-Public Use
  Company Number: None

PATIENT
  Age: 55 Year
  Sex: Female
  Weight: 91 kg

DRUGS (10)
  1. METHOTREXATE SODIUM [Suspect]
     Active Substance: METHOTREXATE SODIUM
     Dosage: 100 MG
     Route: 058
     Dates: start: 20220316
  2. METHOTREXATE SODIUM [Suspect]
     Active Substance: METHOTREXATE SODIUM
     Dosage: UNK
     Route: 048
  3. AMLODIPINE [Concomitant]
     Active Substance: AMLODIPINE BESYLATE
     Indication: Ill-defined disorder
     Dosage: TAKE ONE DAILY
     Dates: start: 20211005
  4. ESTRADIOL [Concomitant]
     Active Substance: ESTRADIOL
     Indication: Ill-defined disorder
     Dosage: APPLY ONE TWICE WEEKLY
     Dates: start: 20211005
  5. FOLIC ACID [Concomitant]
     Active Substance: FOLIC ACID
     Indication: Ill-defined disorder
     Dosage: 1 DF, WEEKLY EVERY THURSDAY
     Dates: start: 20211005
  6. LANSOPRAZOLE [Concomitant]
     Active Substance: LANSOPRAZOLE
     Indication: Ill-defined disorder
     Dosage: 1 DF, 1X/DAY
     Dates: start: 20211005
  7. NAPROXEN [Concomitant]
     Active Substance: NAPROXEN
     Indication: Ill-defined disorder
     Dosage: 1 DF, 3X/DAY
     Dates: start: 20211005
  8. ACETAMINOPHEN [Concomitant]
     Active Substance: ACETAMINOPHEN
     Indication: Ill-defined disorder
     Dosage: TAKE 1 OR 2 4 TIMES/DAY
     Dates: start: 20211005
  9. PROGESTERONE [Concomitant]
     Active Substance: PROGESTERONE
     Indication: Ill-defined disorder
     Dosage: 1 DF, 1X/DAY
     Dates: start: 20211005
  10. SENNA LEAF [Concomitant]
     Active Substance: SENNA LEAF
     Indication: Ill-defined disorder
     Dosage: TAKE 1 OR 2 AT NIGHT
     Dates: start: 20211005

REACTIONS (2)
  - Vomiting [Unknown]
  - Drug intolerance [Unknown]

NARRATIVE: CASE EVENT DATE: 20220316
